FAERS Safety Report 22655324 (Version 1)
Quarter: 2023Q2

REPORT INFORMATION
  Report Type: Spontaneous
  Country: US (occurrence: None)
  Receive Date: 20230629
  Receipt Date: 20230629
  Transmission Date: 20230721
  Serious: No
  Sender: FDA-Public Use
  Company Number: 2023A148775

PATIENT
  Age: 932 Month

DRUGS (1)
  1. FARXIGA [Suspect]
     Active Substance: DAPAGLIFLOZIN PROPANEDIOL
     Dosage: UNKNOWN
     Route: 048
     Dates: start: 202306

REACTIONS (8)
  - Dizziness [Unknown]
  - Feeling abnormal [Unknown]
  - Hypotension [Unknown]
  - Pollakiuria [Unknown]
  - Gait disturbance [Unknown]
  - Hypervolaemia [Unknown]
  - Energy increased [Unknown]
  - Vertigo [Unknown]

NARRATIVE: CASE EVENT DATE: 20230601
